FAERS Safety Report 4507077-3 (Version None)
Quarter: 2004Q4

REPORT INFORMATION
  Report Type: 
  Country: None (occurrence: None)
  Receive Date: 20041117
  Receipt Date: 20041105
  Transmission Date: 20050328
  Serious: Yes (Other)
  Sender: FDA-Public Use
  Company Number: 2004-11-0501

PATIENT
  Age: 52 Year
  Sex: Male

DRUGS (3)
  1. INTERFERON ALFA INJECTABLE [Suspect]
     Indication: RENAL CELL CARCINOMA STAGE UNSPECIFIED
     Dosage: SEE IMAGE
     Dates: start: 19970701, end: 19990501
  2. INTERFERON ALFA INJECTABLE [Suspect]
     Indication: RENAL CELL CARCINOMA STAGE UNSPECIFIED
     Dosage: SEE IMAGE
     Dates: start: 20010501, end: 20020501
  3. PROLEUKIN [Concomitant]

REACTIONS (7)
  - CHOROIDAL NEOVASCULARISATION [None]
  - CONDITION AGGRAVATED [None]
  - DISEASE RECURRENCE [None]
  - METAMORPHOPSIA [None]
  - METASTASES TO LUNG [None]
  - VISION BLURRED [None]
  - VISUAL ACUITY REDUCED [None]
